FAERS Safety Report 14647692 (Version 1)
Quarter: 2018Q1

REPORT INFORMATION
  Report Type: Spontaneous
  Country: CN (occurrence: CN)
  Receive Date: 20180316
  Receipt Date: 20180316
  Transmission Date: 20180509
  Serious: Yes (Other)
  Sender: FDA-Public Use
  Company Number: CN-TELIGENT, INC-IGIL20180137

PATIENT
  Age: 70 Year
  Sex: Female

DRUGS (3)
  1. CEFUROXIME SODIUM. [Suspect]
     Active Substance: CEFUROXIME SODIUM
     Indication: POSTOPERATIVE CARE
     Dosage: 1 MG/0.1 ML
  2. TOBRADEX [Concomitant]
     Active Substance: DEXAMETHASONE\TOBRAMYCIN
     Indication: POSTOPERATIVE CARE
     Dosage: UNKNOWN
     Route: 047
  3. TOBRADEX [Concomitant]
     Active Substance: DEXAMETHASONE\TOBRAMYCIN
     Dosage: UNKNOWN
     Route: 047

REACTIONS (8)
  - Retinopathy [Unknown]
  - Retinal detachment [Recovered/Resolved]
  - Cystoid macular oedema [Recovered/Resolved]
  - Incorrect route of drug administration [None]
  - Vitreous detachment [Unknown]
  - Corneal oedema [Recovered/Resolved]
  - Retinal oedema [Unknown]
  - Visual impairment [Unknown]
